FAERS Safety Report 5076387-6 (Version None)
Quarter: 2006Q3

REPORT INFORMATION
  Report Type: 
  Country: None (occurrence: None)
  Receive Date: 20060810
  Receipt Date: 20060731
  Transmission Date: 20061208
  Serious: Yes (Hospitalization)
  Sender: FDA-Public Use
  Company Number: PHBS2006SE11615

PATIENT
  Age: 32 Year
  Sex: Female

DRUGS (1)
  1. TEGRETOL [Suspect]
     Dosage: 20000 MG, ONCE/SINGLE
     Route: 048
     Dates: start: 20060506, end: 20060506

REACTIONS (6)
  - APATHY [None]
  - DEPRESSED LEVEL OF CONSCIOUSNESS [None]
  - DRUG LEVEL INCREASED [None]
  - FATIGUE [None]
  - INTUBATION [None]
  - POISONING [None]
